FAERS Safety Report 6409748-0 (Version None)
Quarter: 2009Q4

REPORT INFORMATION
  Report Type: 
  Country: None (occurrence: None)
  Receive Date: 20091022
  Receipt Date: 20091013
  Transmission Date: 20100525
  Serious: Yes (Hospitalization)
  Sender: FDA-Public Use
  Company Number: PHHO2009IT12687

PATIENT
  Sex: Male
  Weight: 60 kg

DRUGS (3)
  1. RAD 666 RAD+TAB+PTR [Suspect]
     Indication: RENAL TRANSPLANT
     Dosage: 1 MG
     Route: 048
     Dates: start: 20090801
  2. NEORAL [Suspect]
     Dosage: 100 MG
     Route: 048
     Dates: start: 20090801
  3. MEDROL [Suspect]
     Indication: RENAL TRANSPLANT
     Dosage: 2MG
     Route: 048
     Dates: start: 20091010

REACTIONS (3)
  - BLOOD CREATININE INCREASED [None]
  - DRUG INEFFECTIVE [None]
  - KIDNEY TRANSPLANT REJECTION [None]
